FAERS Safety Report 12366733 (Version 5)
Quarter: 2017Q4

REPORT INFORMATION
  Report Type: Report from Study
  Country: None (occurrence: DE)
  Receive Date: 20160513
  Receipt Date: 20171114
  Transmission Date: 20180320
  Serious: Yes (Hospitalization, Other)
  Sender: FDA-Public Use
  Company Number: DE-ABBVIE-16K-062-1622223-00

PATIENT
  Age: 63 Year
  Sex: Male
  Weight: 89 kg

DRUGS (14)
  1. CLOPIDOGREL [Concomitant]
     Active Substance: CLOPIDOGREL BISULFATE
     Indication: PRODUCT USED FOR UNKNOWN INDICATION
     Route: 065
     Dates: end: 201604
  2. INSPRA [Concomitant]
     Active Substance: EPLERENONE
     Indication: PRODUCT USED FOR UNKNOWN INDICATION
     Dosage: 1 X 1
     Route: 065
  3. HUMIRA [Suspect]
     Active Substance: ADALIMUMAB
     Indication: PSORIASIS
     Route: 058
     Dates: start: 20151029, end: 201604
  4. METOPROLOL. [Concomitant]
     Active Substance: METOPROLOL
     Indication: PRODUCT USED FOR UNKNOWN INDICATION
     Dosage: DAILY DOSE: 45.25 MILLIGRAM
     Route: 065
  5. INSPRA [Concomitant]
     Active Substance: EPLERENONE
     Indication: PRODUCT USED FOR UNKNOWN INDICATION
     Route: 065
  6. CARVEDILOL. [Concomitant]
     Active Substance: CARVEDILOL
     Indication: PRODUCT USED FOR UNKNOWN INDICATION
     Dosage: 1/2 X 2
     Route: 065
  7. TOREM [Concomitant]
     Active Substance: TORSEMIDE
     Indication: PRODUCT USED FOR UNKNOWN INDICATION
  8. ASS 100 [Concomitant]
     Active Substance: ASPIRIN
     Indication: PRODUCT USED FOR UNKNOWN INDICATION
     Route: 065
  9. PROCORALAN [Concomitant]
     Active Substance: IVABRADINE
     Indication: PRODUCT USED FOR UNKNOWN INDICATION
  10. DIOVAN [Concomitant]
     Active Substance: VALSARTAN
     Indication: PRODUCT USED FOR UNKNOWN INDICATION
     Dosage: 320/12.5 MG
  11. HUMIRA [Suspect]
     Active Substance: ADALIMUMAB
     Route: 058
  12. SIMVASTATIN. [Concomitant]
     Active Substance: SIMVASTATIN
     Indication: PRODUCT USED FOR UNKNOWN INDICATION
     Route: 065
  13. CODIOVAN [Concomitant]
     Active Substance: HYDROCHLOROTHIAZIDE\VALSARTAN
     Indication: PRODUCT USED FOR UNKNOWN INDICATION
     Dosage: 320/12.5 MG
     Route: 065
  14. ALLOPURINOL. [Concomitant]
     Active Substance: ALLOPURINOL
     Indication: PRODUCT USED FOR UNKNOWN INDICATION
     Route: 065

REACTIONS (30)
  - Cardiac ventricular thrombosis [Unknown]
  - Atrial thrombosis [Recovered/Resolved]
  - Coagulopathy [Unknown]
  - Breath sounds abnormal [Unknown]
  - Glomerular filtration rate increased [Unknown]
  - Monocyte count increased [Unknown]
  - Ventricular tachycardia [Recovered/Resolved]
  - Ejection fraction decreased [Unknown]
  - Obesity [Unknown]
  - Atrial tachycardia [Recovered/Resolved]
  - Mean cell haemoglobin increased [Unknown]
  - Mean cell volume increased [Unknown]
  - Ejection fraction decreased [Unknown]
  - Atrial thrombosis [Unknown]
  - Angina pectoris [Recovered/Resolved]
  - Cardiomegaly [Unknown]
  - Blood glucose increased [Unknown]
  - Ventricular fibrillation [Recovered/Resolved with Sequelae]
  - Atrial thrombosis [Recovered/Resolved]
  - Disease susceptibility [Unknown]
  - Ventricular tachycardia [Unknown]
  - Transaminases increased [Not Recovered/Not Resolved]
  - Blood creatinine increased [Unknown]
  - Ventricular hypokinesia [Unknown]
  - Platelet count decreased [Unknown]
  - Red blood cell count decreased [Unknown]
  - Atrial flutter [Recovered/Resolved]
  - Dyspnoea [Unknown]
  - General physical health deterioration [Unknown]
  - Blood urea increased [Unknown]

NARRATIVE: CASE EVENT DATE: 201604
